FAERS Safety Report 6294012-3 (Version None)
Quarter: 2009Q3

REPORT INFORMATION
  Report Type: 
  Country: None (occurrence: None)
  Receive Date: 20090803
  Receipt Date: 20080722
  Transmission Date: 20100115
  Serious: No
  Sender: FDA-Public Use
  Company Number: A0739067A

PATIENT
  Age: 83 Year
  Sex: Female

DRUGS (1)
  1. NICORETTE [Suspect]
     Indication: SMOKING CESSATION THERAPY
     Dosage: 4MG FIVE TIMES PER DAY

REACTIONS (5)
  - DEHYDRATION [None]
  - INTENTIONAL DRUG MISUSE [None]
  - NERVOUSNESS [None]
  - NICOTINE DEPENDENCE [None]
  - RESTLESSNESS [None]
